FAERS Safety Report 17951694 (Version 2)
Quarter: 2020Q3

REPORT INFORMATION
  Report Type: Spontaneous
  Country: IT (occurrence: IT)
  Receive Date: 20200626
  Receipt Date: 20200805
  Transmission Date: 20201103
  Serious: Yes (Other)
  Sender: FDA-Public Use
  Company Number: IT-JNJFOC-20200631280

PATIENT
  Age: 34 Year
  Sex: Male

DRUGS (6)
  1. VERAPAMIL [Suspect]
     Active Substance: VERAPAMIL HYDROCHLORIDE
     Indication: CLUSTER HEADACHE
     Dosage: UP TO THE DOSE OF 120 MG QID
     Route: 065
  2. TOPAMAX [Suspect]
     Active Substance: TOPIRAMATE
     Indication: CLUSTER HEADACHE
     Dosage: UP TO THE DOSE OF 100 MG BID
     Route: 048
     Dates: start: 2018
  3. VERAPAMIL [Suspect]
     Active Substance: VERAPAMIL HYDROCHLORIDE
     Indication: MIGRAINE WITHOUT AURA
  4. LITHIUM. [Suspect]
     Active Substance: LITHIUM
     Indication: CLUSTER HEADACHE
     Dosage: UP TO THE DOSE OF 300 MG TID
     Route: 065
  5. LITHIUM. [Suspect]
     Active Substance: LITHIUM
     Indication: MIGRAINE WITHOUT AURA
  6. TOPAMAX [Suspect]
     Active Substance: TOPIRAMATE
     Indication: MIGRAINE WITHOUT AURA

REACTIONS (7)
  - Erectile dysfunction [Unknown]
  - Memory impairment [Unknown]
  - Disturbance in attention [Unknown]
  - Tremor [Unknown]
  - Asthenia [Unknown]
  - Aphasia [Unknown]
  - Drug ineffective [Unknown]
